FAERS Safety Report 4655638-3 (Version None)
Quarter: 2005Q2

REPORT INFORMATION
  Report Type: 
  Country: None (occurrence: None)
  Receive Date: 20050505
  Receipt Date: 20050422
  Transmission Date: 20051028
  Serious: Yes (Hospitalization)
  Sender: FDA-Public Use
  Company Number: KII-2005-0016293

PATIENT
  Age: 26 Year
  Sex: Male

DRUGS (6)
  1. OXYCONTIN [Suspect]
     Dosage: ORAL
     Route: 048
  2. METHADONE HCL [Suspect]
     Dosage: ORAL
     Route: 048
  3. BENZODIAZEPINE DERIVATIVES() [Suspect]
     Dosage: ORAL
     Route: 048
  4. SSRI() [Suspect]
     Dosage: ORAL
     Route: 048
  5. TRICYCLIC ANTIDEPRESSANTS() [Suspect]
  6. ACETYLSALICYLIC ACID SRT [Suspect]

REACTIONS (8)
  - AGGRESSION [None]
  - AGITATION [None]
  - DISORIENTATION [None]
  - DRUG SCREEN POSITIVE [None]
  - DYSARTHRIA [None]
  - LETHARGY [None]
  - MULTIPLE DRUG OVERDOSE [None]
  - VOMITING [None]
